FAERS Safety Report 9643550 (Version 2)
Quarter: 2013Q4

REPORT INFORMATION
  Report Type: Spontaneous
  Country: US (occurrence: US)
  Receive Date: 20131024
  Receipt Date: 20131127
  Transmission Date: 20140711
  Serious: Yes (Other)
  Sender: FDA-Public Use
  Company Number: US-TEVA-439804USA

PATIENT
  Age: 17 Year
  Sex: Female
  Weight: 90.8 kg

DRUGS (5)
  1. PARAGARD 380A [Suspect]
     Indication: CONTRACEPTION
     Route: 015
     Dates: start: 20130909, end: 20131021
  2. CARVEDILOL [Concomitant]
     Indication: CARDIOMYOPATHY
  3. MGS [Concomitant]
     Indication: CARDIOMYOPATHY
  4. ACETYLSALICYLIC ACID [Concomitant]
     Indication: CARDIOMYOPATHY
  5. LISINOPRIL [Concomitant]
     Indication: CARDIOMYOPATHY

REACTIONS (7)
  - Device dislocation [Recovered/Resolved]
  - Haemorrhage [Recovered/Resolved]
  - Vaginal haemorrhage [Recovered/Resolved]
  - Abdominal pain [Recovered/Resolved]
  - Device expulsion [Recovered/Resolved]
  - Pelvic pain [Recovered/Resolved]
  - Metrorrhagia [Recovered/Resolved]
